FAERS Safety Report 6682942-X (Version None)
Quarter: 2010Q2

REPORT INFORMATION
  Report Type: 
  Country: None (occurrence: None)
  Receive Date: 20100415
  Receipt Date: 20100406
  Transmission Date: 20101027
  Serious: Yes (Hospitalization, Other)
  Sender: FDA-Public Use
  Company Number: SG-ALLERGAN-1004688US

PATIENT
  Age: 72 Year
  Sex: Female

DRUGS (2)
  1. PRED FORTE [Suspect]
     Indication: POSTOPERATIVE CARE
     Dosage: UNK
     Route: 047
  2. CRAVIT [Suspect]
     Indication: POSTOPERATIVE CARE
     Dosage: UNK
     Route: 047

REACTIONS (8)
  - CANDIDIASIS [None]
  - CORNEAL DISORDER [None]
  - CORNEAL OEDEMA [None]
  - CORNEAL OPACITY [None]
  - HYPOPYON [None]
  - KERATITIS [None]
  - LENTICULAR OPACITIES [None]
  - TRANSPLANT FAILURE [None]
